FAERS Safety Report 7709520-5 (Version None)
Quarter: 2011Q3

REPORT INFORMATION
  Report Type: 
  Country: None (occurrence: None)
  Receive Date: 20110825
  Receipt Date: 20110817
  Transmission Date: 20111222
  Serious: Yes (Other)
  Sender: FDA-Public Use
  Company Number: CHPA2011US11037

PATIENT
  Age: 60 Year
  Sex: Female
  Weight: 113.38 kg

DRUGS (3)
  1. PERDIEM OVERNIGHT RELIEF PILLS [Suspect]
     Indication: CONSTIPATION
     Dosage: 2-3 PILLS A DAY
     Route: 048
  2. MIRALAX [Suspect]
     Indication: CONSTIPATION
     Dosage: A LITTLE CUP A DAY
     Route: 048
  3. PERDIEM OVERNIGHT RELIEF PILLS [Suspect]
     Dosage: 4-5 PILLS A DAY
     Route: 048

REACTIONS (8)
  - LESION EXCISION [None]
  - COLONIC POLYP [None]
  - GASTRIC MUCOSAL LESION [None]
  - OVERDOSE [None]
  - MELANOSIS COLI [None]
  - INCORRECT DRUG ADMINISTRATION DURATION [None]
  - DRUG INEFFECTIVE [None]
  - GASTROINTESTINAL TRACT MUCOSAL PIGMENTATION [None]
